FAERS Safety Report 7756478-9 (Version None)
Quarter: 2011Q3

REPORT INFORMATION
  Report Type: 
  Country: None (occurrence: None)
  Receive Date: 20110901
  Receipt Date: 20110825
  Transmission Date: 20111222
  Serious: Yes (Other)
  Sender: FDA-Public Use
  Company Number: 2011029654

PATIENT
  Age: 25 Year
  Sex: Female

DRUGS (1)
  1. HIZENTRA [Suspect]
     Dosage: SUBCUTANEOUS
     Route: 058

REACTIONS (1)
  - RESPIRATORY TRACT INFECTION [None]
